FAERS Safety Report 10671517 (Version 1)
Quarter: 2014Q4

REPORT INFORMATION
  Report Type: Spontaneous
  Country: US (occurrence: None)
  Receive Date: 20141222
  Receipt Date: 20141222
  Transmission Date: 20150529
  Serious: Yes (Hospitalization)
  Sender: FDA-Public Use
  Company Number: None

PATIENT
  Age: 56 Year
  Sex: Female
  Weight: 49.9 kg

DRUGS (1)
  1. LEVOFLOXACIN 500MG/750 MG [Suspect]
     Active Substance: LEVOFLOXACIN
     Indication: DRUG THERAPY
     Dates: start: 20140821, end: 20140827

REACTIONS (3)
  - Pulmonary haemorrhage [None]
  - Gait disturbance [None]
  - Pain [None]

NARRATIVE: CASE EVENT DATE: 20140821
